FAERS Safety Report 20299127 (Version 3)
Quarter: 2022Q1

REPORT INFORMATION
  Report Type: Spontaneous
  Country: DE (occurrence: DE)
  Receive Date: 20220105
  Receipt Date: 20220330
  Transmission Date: 20220423
  Serious: Yes (Life-Threatening, Other)
  Sender: FDA-Public Use
  Company Number: DE-PFIZER INC-202101862591

PATIENT
  Age: 24 Year
  Sex: Male
  Weight: 82 kg

DRUGS (9)
  1. GEMTUZUMAB OZOGAMICIN [Suspect]
     Active Substance: GEMTUZUMAB OZOGAMICIN
     Indication: Acute myelomonocytic leukaemia
     Dosage: 3 MG/M2/2 HOURS
     Route: 042
     Dates: start: 20210123, end: 20210123
  2. GEMTUZUMAB OZOGAMICIN [Suspect]
     Active Substance: GEMTUZUMAB OZOGAMICIN
     Dosage: 3 MG/M2/2 HOURS
     Route: 042
     Dates: start: 20210126, end: 20210126
  3. GEMTUZUMAB OZOGAMICIN [Suspect]
     Active Substance: GEMTUZUMAB OZOGAMICIN
     Dosage: 3 MG/M2/2 HOURS
     Route: 042
     Dates: start: 20210128, end: 20210128
  4. CYTARABINE [Concomitant]
     Active Substance: CYTARABINE
     Indication: Acute myelomonocytic leukaemia
     Dosage: 200 MG/M2/23 HOURS
     Route: 042
     Dates: start: 20210123, end: 20210129
  5. DAUNORUBICIN [Concomitant]
     Active Substance: DAUNORUBICIN
     Indication: Acute myelomonocytic leukaemia
     Dosage: 60 MG/M2/30 MIN
     Route: 042
     Dates: start: 20210123, end: 20210125
  6. MEROPENEM [Concomitant]
     Active Substance: MEROPENEM
     Dosage: 1 G, 3X/DAY
  7. POSACONAZOLE [Concomitant]
     Active Substance: POSACONAZOLE
     Dosage: 300 G, DAILY
     Route: 048
  8. VANCOMYCIN [Concomitant]
     Active Substance: VANCOMYCIN
     Dosage: 1 G, 2X/DAY
     Route: 042
     Dates: end: 20210109
  9. LINEZOLID [Concomitant]
     Active Substance: LINEZOLID
     Dosage: 600 MG, 3X/DAY
     Dates: start: 20210109

REACTIONS (10)
  - Haemophagocytic lymphohistiocytosis [Recovered/Resolved]
  - Thrombocytopenia [Recovered/Resolved]
  - Meningitis [Unknown]
  - Refractoriness to platelet transfusion [Recovered/Resolved]
  - Cough [Recovered/Resolved]
  - Blood pressure abnormal [Recovered/Resolved]
  - Headache [Recovered/Resolved]
  - Neck pain [Recovered/Resolved]
  - Sinusitis [Recovered/Resolved]
  - Pyrexia [Recovered/Resolved]

NARRATIVE: CASE EVENT DATE: 20210101
